FAERS Safety Report 8306695-4 (Version None)
Quarter: 2012Q2

REPORT INFORMATION
  Report Type: 
  Country: None (occurrence: None)
  Receive Date: 20120420
  Receipt Date: 20120418
  Transmission Date: 20120825
  Serious: Yes (Death, Hospitalization, Other)
  Sender: FDA-Public Use
  Company Number: ADR-2011-11289

PATIENT
  Age: 4 Year
  Sex: Male

DRUGS (3)
  1. LIORESAL [Suspect]
     Indication: BRAIN INJURY
     Dosage: 224.0 MCG, DAILY, INTRATH
     Route: 037
  2. LIORESAL [Suspect]
     Indication: MUSCLE SPASTICITY
     Dosage: 224.0 MCG, DAILY, INTRATH
     Route: 037
  3. LIORESAL [Suspect]
     Indication: HEAD INJURY
     Dosage: 224.0 MCG, DAILY, INTRATH
     Route: 037

REACTIONS (5)
  - HYDROCEPHALUS [None]
  - NEURODEGENERATIVE DISORDER [None]
  - AUTONOMIC NERVOUS SYSTEM IMBALANCE [None]
  - MENTAL STATUS CHANGES [None]
  - URINARY TRACT INFECTION [None]
